FAERS Safety Report 22252133 (Version 4)
Quarter: 2025Q2

REPORT INFORMATION
  Report Type: Spontaneous
  Country: JP (occurrence: JP)
  Receive Date: 20230425
  Receipt Date: 20250602
  Transmission Date: 20250717
  Serious: Yes (Death, Other)
  Sender: NOVARTIS
  Company Number: JP-002147023-NVSJ2023JP006830

PATIENT
  Age: 90 Year
  Sex: Female

DRUGS (2)
  1. PAZOPANIB [Suspect]
     Active Substance: PAZOPANIB
     Indication: Skin angiosarcoma
     Route: 048
  2. PAZOPANIB [Suspect]
     Active Substance: PAZOPANIB
     Indication: Palliative care
     Route: 048

REACTIONS (7)
  - Skin angiosarcoma [Fatal]
  - Malignant neoplasm progression [Fatal]
  - Hepatic function abnormal [Unknown]
  - Hypertension [Unknown]
  - Platelet count decreased [Unknown]
  - Palmar-plantar erythrodysaesthesia syndrome [Unknown]
  - Therapeutic response decreased [Unknown]
